FAERS Safety Report 5191793-7 (Version None)
Quarter: 2006Q4

REPORT INFORMATION
  Report Type: 
  Country: None (occurrence: None)
  Receive Date: 20061226
  Receipt Date: 20061218
  Transmission Date: 20070319
  Serious: Yes (Hospitalization)
  Sender: FDA-Public Use
  Company Number: FI-ELI_LILLY_AND_COMPANY-FI200612003286

PATIENT
  Age: 46 Year
  Sex: Female

DRUGS (3)
  1. GEMZAR [Suspect]
     Indication: OVARIAN CANCER
     Dosage: 2000 MG, UNKNOWN
     Route: 042
     Dates: start: 20060913
  2. DUROGESIC                               /DEN/ [Concomitant]
     Indication: PAIN
     Dosage: 25 UG, UNKNOWN
     Route: 061
     Dates: start: 20060902
  3. MAREVAN ^BRITISH DRUG HOUSES^ [Concomitant]
     Indication: PULMONARY EMBOLISM
     Dosage: UNK, UNK
     Route: 048
     Dates: start: 20050701

REACTIONS (3)
  - PLATELET COUNT DECREASED [None]
  - PYREXIA [None]
  - URTICARIA [None]
